FAERS Safety Report 24860319 (Version 1)
Quarter: 2025Q1

REPORT INFORMATION
  Report Type: Spontaneous
  Country: US (occurrence: US)
  Receive Date: 20250120
  Receipt Date: 20250120
  Transmission Date: 20250409
  Serious: No
  Sender: STRIDES
  Company Number: US-STRIDES ARCOLAB LIMITED-2024SP001171

PATIENT

DRUGS (1)
  1. METHOTREXATE [Suspect]
     Active Substance: METHOTREXATE
     Indication: Dermatitis atopic
     Route: 048
     Dates: start: 2012, end: 202112

REACTIONS (4)
  - Fatigue [Unknown]
  - Nausea [Unknown]
  - Myalgia [Unknown]
  - Off label use [Unknown]
